FAERS Safety Report 7113571-1 (Version None)
Quarter: 2010Q4

REPORT INFORMATION
  Report Type: 
  Country: None (occurrence: None)
  Receive Date: 20101119
  Receipt Date: 20101110
  Transmission Date: 20110411
  Serious: Yes (Other)
  Sender: FDA-Public Use
  Company Number: FR-ROCHE-726450

PATIENT
  Sex: Male

DRUGS (4)
  1. PEGINTERFERON ALFA-2A [Suspect]
     Dosage: DRUG DISCONTINUED
     Route: 065
     Dates: start: 20100310
  2. RIBAVIRIN [Suspect]
     Route: 065
     Dates: start: 20100310
  3. CYCLOSPORINE [Concomitant]
  4. CELLCEPT [Concomitant]

REACTIONS (1)
  - LIVER TRANSPLANT REJECTION [None]
